FAERS Safety Report 4381874-X (Version None)
Quarter: 2004Q2

REPORT INFORMATION
  Report Type: 
  Country: None (occurrence: None)
  Receive Date: 20040615
  Receipt Date: 20040603
  Transmission Date: 20050107
  Serious: No
  Sender: FDA-Public Use
  Company Number: 04P-056-0262652-00

PATIENT
  Age: 55 Year
  Sex: Female
  Weight: 57 kg

DRUGS (10)
  1. HUMIRA [Suspect]
     Indication: RHEUMATOID ARTHRITIS
     Dosage: 40 MG, 1 IN 2 WK, SUBCUTANEOUS
     Route: 058
     Dates: start: 20030926, end: 20031223
  2. ETANERCEPT [Concomitant]
  3. METHOTREXATE [Concomitant]
  4. PREDNISONE [Concomitant]
  5. CLONAZEPAM [Concomitant]
  6. KETOPROFEN [Concomitant]
  7. OMEPRAZOLE [Concomitant]
  8. LEKOVIT CA [Concomitant]
  9. PROPOFOL [Concomitant]
  10. AZATHIOPRINE [Concomitant]

REACTIONS (3)
  - ASTHENIA [None]
  - PLASMA CELL DISORDER [None]
  - WEIGHT DECREASED [None]
